FAERS Safety Report 23628365 (Version 2)
Quarter: 2024Q1

REPORT INFORMATION
  Report Type: Spontaneous
  Country: US (occurrence: US)
  Receive Date: 20240313
  Receipt Date: 20240322
  Transmission Date: 20240410
  Serious: Yes (Hospitalization, Other)
  Sender: FDA-Public Use
  Company Number: US-PARATEK PHARMACEUTICALS, INC.-2024PTK00158

PATIENT
  Age: 70 Year
  Sex: Male
  Weight: 127.44 kg

DRUGS (5)
  1. NUZYRA [Suspect]
     Active Substance: OMADACYCLINE
     Indication: Localised infection
     Dosage: UNK
     Route: 048
     Dates: start: 202312
  2. NUZYRA [Suspect]
     Active Substance: OMADACYCLINE
     Dosage: 300 MG, 1X/DAY
     Route: 048
     Dates: start: 20240227
  3. CLONIDINE [Concomitant]
     Active Substance: CLONIDINE
  4. GABAPENTIN [Concomitant]
     Active Substance: GABAPENTIN
  5. UNSPECIFIED REGULAR PILLS [Concomitant]

REACTIONS (2)
  - Localised infection [Recovering/Resolving]
  - Poor peripheral circulation [Unknown]

NARRATIVE: CASE EVENT DATE: 20240228
